FAERS Safety Report 8233694-3 (Version None)
Quarter: 2012Q1

REPORT INFORMATION
  Report Type: 
  Country: None (occurrence: None)
  Receive Date: 20120307
  Receipt Date: 20110412
  Transmission Date: 20120608
  Serious: Yes (Other)
  Sender: FDA-Public Use
  Company Number: PHHY2011US27895

PATIENT
  Age: 49 Year
  Sex: Male

DRUGS (2)
  1. AFINITOR [Suspect]
     Dosage: 10 MG, QD, ORAL
     Route: 048
     Dates: start: 20110128, end: 20110328
  2. IMODIUM A-D [Concomitant]

REACTIONS (4)
  - COUGH [None]
  - DIARRHOEA [None]
  - NEOPLASM MALIGNANT [None]
  - DRUG INEFFECTIVE [None]
